FAERS Safety Report 23100173 (Version 1)
Quarter: 2023Q4

REPORT INFORMATION
  Report Type: Other
  Country: FR (occurrence: None)
  Receive Date: 20231024
  Receipt Date: 20231024
  Transmission Date: 20240110
  Serious: Yes (Other)
  Sender: FDA-Public Use
  Company Number: FR-ROCHE-3441986

PATIENT

DRUGS (3)
  1. ATEZOLIZUMAB [Suspect]
     Active Substance: ATEZOLIZUMAB
     Indication: Small cell lung cancer metastatic
     Dosage: ON DAY 1
     Route: 042
  2. CARBOPLATIN [Suspect]
     Active Substance: CARBOPLATIN
     Indication: Small cell lung cancer metastatic
     Dosage: ON D1, D2, AND D3
     Route: 042
  3. ETOPOSIDE [Suspect]
     Active Substance: ETOPOSIDE
     Indication: Small cell lung cancer metastatic
     Dosage: ON D1, D2, AND D3
     Route: 042

REACTIONS (13)
  - Hepatic cytolysis [Unknown]
  - Renal failure [Unknown]
  - Skin toxicity [Unknown]
  - Gastrointestinal toxicity [Unknown]
  - Blood disorder [Unknown]
  - Pancreatitis [Unknown]
  - Infection [Unknown]
  - Pneumonitis [Unknown]
  - Thyroiditis [Unknown]
  - Adrenal insufficiency [Unknown]
  - Diabetes mellitus [Unknown]
  - Hypophysitis [Unknown]
  - Interstitial lung disease [Unknown]
